FAERS Safety Report 16013778 (Version 3)
Quarter: 2019Q2

REPORT INFORMATION
  Report Type: Spontaneous
  Country: PL (occurrence: PL)
  Receive Date: 20190227
  Receipt Date: 20190409
  Transmission Date: 20190711
  Serious: Yes (Other)
  Sender: FDA-Public Use
  Company Number: PL-ELI_LILLY_AND_COMPANY-PL201902007736

PATIENT
  Age: 64 Year
  Sex: Female
  Weight: 55 kg

DRUGS (1)
  1. ZYPADHERA [Suspect]
     Active Substance: OLANZAPINE PAMOATE
     Indication: PRODUCT USED FOR UNKNOWN INDICATION
     Dosage: 210 MG, 2/M
     Route: 030
     Dates: start: 2015

REACTIONS (10)
  - Abdominal pain upper [Unknown]
  - Abdominal pain [Unknown]
  - Red blood cell sedimentation rate increased [Unknown]
  - Asthenia [Unknown]
  - Weight decreased [Unknown]
  - Hepatic pain [Unknown]
  - Ultrasound abdomen abnormal [Unknown]
  - Hepatic steatosis [Unknown]
  - Blood glucose increased [Unknown]
  - Hepatic cancer [Unknown]

NARRATIVE: CASE EVENT DATE: 20181010
